FAERS Safety Report 18023235 (Version 3)
Quarter: 2020Q3

REPORT INFORMATION
  Report Type: Spontaneous
  Country: US (occurrence: US)
  Receive Date: 20200715
  Receipt Date: 20200813
  Transmission Date: 20201103
  Serious: No
  Sender: FDA-Public Use
  Company Number: US-BIOGEN-2020BI00891086

PATIENT
  Age: 52 Year
  Sex: Female

DRUGS (7)
  1. ZONEGRAN [Concomitant]
     Active Substance: ZONISAMIDE
     Route: 065
  2. ELAVIL [Concomitant]
     Active Substance: AMITRIPTYLINE HYDROCHLORIDE
     Route: 065
  3. AVONEX PEN [Suspect]
     Active Substance: INTERFERON BETA-1A
     Indication: MULTIPLE SCLEROSIS
     Route: 065
  4. AVONEX PEN [Suspect]
     Active Substance: INTERFERON BETA-1A
  5. AVONEX PEN [Suspect]
     Active Substance: INTERFERON BETA-1A
     Route: 030
     Dates: start: 20200228
  6. AVONEX PEN [Suspect]
     Active Substance: INTERFERON BETA-1A
  7. GABAPENTIN. [Concomitant]
     Active Substance: GABAPENTIN
     Route: 065

REACTIONS (7)
  - Feeling abnormal [Not Recovered/Not Resolved]
  - Migraine [Not Recovered/Not Resolved]
  - Headache [Recovered/Resolved]
  - Multiple sclerosis relapse [Not Recovered/Not Resolved]
  - Muscular weakness [Not Recovered/Not Resolved]
  - Nausea [Recovered/Resolved]
  - Malaise [Recovered/Resolved]

NARRATIVE: CASE EVENT DATE: 202002
